FAERS Safety Report 9015098 (Version 1)
Quarter: 2013Q1

REPORT INFORMATION
  Report Type: Spontaneous
  Country: US (occurrence: US)
  Receive Date: 20130116
  Receipt Date: 20130116
  Transmission Date: 20140127
  Serious: Yes (Death, Hospitalization, Other)
  Sender: FDA-Public Use
  Company Number: US-PAR PHARMACEUTICAL, INC-2013SCPR004950

PATIENT
  Age: 49 Year
  Sex: Male

DRUGS (1)
  1. VENLAFAXINE HYDROCHLORIDE [Suspect]
     Indication: PRODUCT USED FOR UNKNOWN INDICATION
     Dosage: UNK, UNKNOWN
     Route: 048

REACTIONS (11)
  - Death [Fatal]
  - Completed suicide [Fatal]
  - Toxicity to various agents [Fatal]
  - Cardiogenic shock [Unknown]
  - Haemodynamic instability [Unknown]
  - Electrocardiogram QRS complex prolonged [Unknown]
  - Mental impairment [Unknown]
  - Ileus [Unknown]
  - Transaminases increased [Unknown]
  - Ventricular arrhythmia [Unknown]
  - Convulsion [Fatal]
